FAERS Safety Report 13801156 (Version 1)
Quarter: 2017Q3

REPORT INFORMATION
  Report Type: Other
  Country: FR (occurrence: FR)
  Receive Date: 20170727
  Receipt Date: 20170727
  Transmission Date: 20171127
  Serious: Yes (Other)
  Sender: FDA-Public Use
  Company Number: FR-GEHC-2017CSU002213

PATIENT

DRUGS (2)
  1. VISIPAQUE [Suspect]
     Active Substance: IODIXANOL
     Indication: CONTRAST MEDIA ALLERGY
     Dosage: UNK UNK, SINGLE
     Route: 023
     Dates: start: 20170601, end: 20170601
  2. OMNIPAQUE [Suspect]
     Active Substance: IOHEXOL
     Indication: CONTRAST MEDIA ALLERGY
     Dosage: UNK, SINGLE
     Route: 023
     Dates: start: 20170601, end: 20170601

REACTIONS (2)
  - Local reaction [Recovered/Resolved]
  - Bronchospasm [Recovered/Resolved]

NARRATIVE: CASE EVENT DATE: 20170601
